FAERS Safety Report 9249203 (Version 1)
Quarter: 2013Q2

REPORT INFORMATION
  Report Type: Report from Study
  Country: US (occurrence: US)
  Receive Date: 20130423
  Receipt Date: 20130423
  Transmission Date: 20140414
  Serious: Yes (Death, Other)
  Sender: FDA-Public Use
  Company Number: US-BAXTER-2013BAX014478

PATIENT
  Age: 71 Year
  Sex: Male

DRUGS (3)
  1. NEXTERONE_AMIODARONE, HYDROCHLORIDE 1.80 MG/ML_SOLUTION FOR INFUSION_B [Suspect]
     Indication: VENTRICULAR TACHYCARDIA
     Route: 042
  2. NEXTERONE_AMIODARONE, HYDROCHLORIDE 1.80 MG/ML_SOLUTION FOR INFUSION_B [Suspect]
  3. AMIODARONE [Concomitant]
     Indication: VENTRICULAR TACHYCARDIA
     Route: 048

REACTIONS (2)
  - Mediastinal abscess [Fatal]
  - Atrioventricular block [Unknown]
